FAERS Safety Report 6290999 (Version 3)
Quarter: 2020Q3

REPORT INFORMATION
  Report Type: Report from Study
  Country: RO (occurrence: RO)
  Receive Date: 20070418
  Receipt Date: 20080118
  Transmission Date: 20201104
  Serious: Yes (Hospitalization)
  Sender: FDA-Public Use
  Company Number: RO-JNJFOC-20070304291

PATIENT
  Age: 44 Year
  Sex: Female
  Weight: 69 kg

DRUGS (4)
  1. DOCETAXEL. [Suspect]
     Active Substance: DOCETAXEL
     Indication: BREAST CANCER
     Dosage: 14.00?15.00 HOURS
     Route: 042
  2. PAMIDRONATE DISODIUM. [Concomitant]
     Active Substance: PAMIDRONATE DISODIUM
     Indication: METASTASES TO BONE
     Route: 042
  3. DOXORUBICIN HYDROCHLORIDE. [Suspect]
     Active Substance: DOXORUBICIN HYDROCHLORIDE
     Indication: BREAST CANCER
     Dosage: 12.00?13.00 HOURS
     Route: 042
  4. DOXORUBICIN HYDROCHLORIDE. [Suspect]
     Active Substance: DOXORUBICIN HYDROCHLORIDE
     Route: 042

REACTIONS (10)
  - Laryngitis [None]
  - Gamma-glutamyltransferase increased [None]
  - Stomatitis [Not Recovered/Not Resolved]
  - Hypokalaemia [None]
  - Neutropenia [None]
  - Bronchospasm [Recovered/Resolved]
  - Sinusitis [None]
  - Dysphagia [None]
  - Leukopenia [None]
  - Palmar-plantar erythrodysaesthesia syndrome [None]

NARRATIVE: CASE EVENT DATE: 20070317
